FAERS Safety Report 7917839-8 (Version None)
Quarter: 2011Q4

REPORT INFORMATION
  Report Type: 
  Country: None (occurrence: None)
  Receive Date: 20111114
  Receipt Date: 20111104
  Transmission Date: 20120403
  Serious: Yes (Other)
  Sender: FDA-Public Use
  Company Number: B0762016A

PATIENT
  Age: 76 Year
  Sex: Male

DRUGS (3)
  1. PROPRANOLOL HYDROCHLORIDE [Suspect]
     Dosage: 80 MG / UNK / ORAL
     Route: 048
  2. BISOPROLOL FUMARATE [Suspect]
     Dosage: 2.5 MG / UNK / ORAL
     Route: 048
  3. DILTIAZEM HYDROCHLORIDE [Suspect]
     Dosage: 300 MG / UNK / ORAL
     Route: 048

REACTIONS (5)
  - HYPOTENSION [None]
  - DYSPNOEA [None]
  - SINUS BRADYCARDIA [None]
  - SOMNOLENCE [None]
  - TOXICITY TO VARIOUS AGENTS [None]
